FAERS Safety Report 13561844 (Version 2)
Quarter: 2017Q2

REPORT INFORMATION
  Report Type: Report from Study
  Country: AU (occurrence: AU)
  Receive Date: 20170518
  Receipt Date: 20170602
  Transmission Date: 20170830
  Serious: Yes (Hospitalization, Other)
  Sender: FDA-Public Use
  Company Number: AU-MYLANLABS-2017M1029214

PATIENT

DRUGS (1)
  1. EMTRICITABINE,TENOFOVIR MYLAN [Suspect]
     Active Substance: EMTRICITABINE\TENOFOVIR
     Indication: PROPHYLAXIS AGAINST HIV INFECTION
     Dosage: 1 DF, QD
     Route: 048
     Dates: start: 20170310

REACTIONS (1)
  - Epilepsy [Unknown]

NARRATIVE: CASE EVENT DATE: 20170424
